FAERS Safety Report 19174131 (Version 1)
Quarter: 2021Q2

REPORT INFORMATION
  Report Type: Spontaneous
  Country: US (occurrence: US)
  Receive Date: 20210423
  Receipt Date: 20210423
  Transmission Date: 20210717
  Serious: No
  Sender: FDA-Public Use
  Company Number: US-CELGENEUS-USA-20210403444

PATIENT
  Sex: Female

DRUGS (12)
  1. REVLIMID [Suspect]
     Active Substance: LENALIDOMIDE
     Dosage: 7.5MG?2.5MG
     Route: 048
     Dates: start: 201803
  2. REVLIMID [Suspect]
     Active Substance: LENALIDOMIDE
     Dosage: 5 MILLIGRAM
     Route: 048
     Dates: start: 201906
  3. REVLIMID [Suspect]
     Active Substance: LENALIDOMIDE
     Indication: PLASMA CELL MYELOMA IN REMISSION
     Dosage: 25 MILLIGRAM
     Route: 048
     Dates: start: 201601
  4. REVLIMID [Suspect]
     Active Substance: LENALIDOMIDE
     Dosage: 10MG?7.5MG
     Route: 048
     Dates: start: 201608
  5. REVLIMID [Suspect]
     Active Substance: LENALIDOMIDE
     Dosage: 7.5 MILLIGRAM
     Route: 048
     Dates: start: 201904
  6. REVLIMID [Suspect]
     Active Substance: LENALIDOMIDE
     Dosage: 7.5MG?5MG
     Route: 048
     Dates: start: 201709
  7. REVLIMID [Suspect]
     Active Substance: LENALIDOMIDE
     Dosage: 7.5 MILLIGRAM
     Route: 048
     Dates: start: 20190524
  8. REVLIMID [Suspect]
     Active Substance: LENALIDOMIDE
     Dosage: 7.5MG?5MG
     Route: 048
     Dates: start: 201801
  9. REVLIMID [Suspect]
     Active Substance: LENALIDOMIDE
     Dosage: 7.5MG?5MG
     Route: 048
     Dates: start: 201806
  10. REVLIMID [Suspect]
     Active Substance: LENALIDOMIDE
     Dosage: 7.5 MILLIGRAM
     Route: 048
     Dates: start: 201904
  11. REVLIMID [Suspect]
     Active Substance: LENALIDOMIDE
     Dosage: 7.5MG?5MG
     Route: 048
     Dates: start: 201703
  12. REVLIMID [Suspect]
     Active Substance: LENALIDOMIDE
     Dosage: 2.5MG?7.5MG
     Route: 048
     Dates: start: 201612

REACTIONS (1)
  - Feeling abnormal [Unknown]
